FAERS Safety Report 15672711 (Version 2)
Quarter: 2019Q1

REPORT INFORMATION
  Report Type: Spontaneous
  Country: FR (occurrence: FR)
  Receive Date: 20181129
  Receipt Date: 20190102
  Transmission Date: 20190417
  Serious: No
  Sender: FDA-Public Use
  Company Number: FR-PROVELL PHARMACEUTICALS-2059418

PATIENT
  Age: 60 Year
  Sex: Female

DRUGS (8)
  1. LASILIX [Concomitant]
     Active Substance: FUROSEMIDE
  2. EUTHYROX [Suspect]
     Active Substance: LEVOTHYROXINE SODIUM
     Indication: HYPOTHYROIDISM
     Dates: start: 201704
  3. AZILECT [Concomitant]
     Active Substance: RASAGILINE MESYLATE
  4. MICARDIS [Concomitant]
     Active Substance: TELMISARTAN
  5. MICARDIS [Concomitant]
     Active Substance: TELMISARTAN
  6. HAMAMELIS [Concomitant]
     Active Substance: HAMAMELIS VIRGINIANA LEAF
  7. SIFROL [Concomitant]
     Active Substance: PRAMIPEXOLE
  8. ARTANE [Concomitant]
     Active Substance: TRIHEXYPHENIDYL HYDROCHLORIDE

REACTIONS (24)
  - Neutrophil count increased [None]
  - Platelet count increased [None]
  - Blood folate decreased [None]
  - Anosognosia [None]
  - Alopecia [None]
  - Fatigue [None]
  - Gastrointestinal disorder [None]
  - Red blood cell count decreased [None]
  - Monocyte count increased [None]
  - Headache [None]
  - Dizziness [None]
  - Loss of personal independence in daily activities [None]
  - Haemoglobin decreased [None]
  - Blood thyroid stimulating hormone increased [Recovered/Resolved]
  - Dyspnoea [None]
  - Abnormal behaviour [None]
  - Haematocrit decreased [None]
  - Memory impairment [None]
  - Dyskinesia [None]
  - Neck pain [None]
  - Serum ferritin increased [None]
  - Transferrin decreased [None]
  - Iron binding capacity total decreased [None]
  - Insomnia [None]

NARRATIVE: CASE EVENT DATE: 2017
